FAERS Safety Report 19598783 (Version 1)
Quarter: 2021Q3

REPORT INFORMATION
  Report Type: Spontaneous
  Country: IR (occurrence: IR)
  Receive Date: 20210722
  Receipt Date: 20210722
  Transmission Date: 20211014
  Serious: No
  Sender: FDA-Public Use
  Company Number: IR-LUPIN PHARMACEUTICALS INC.-2021-12502

PATIENT
  Age: 58 Year
  Sex: Male

DRUGS (5)
  1. HYDROXYCHLOROQUINE [Suspect]
     Active Substance: HYDROXYCHLOROQUINE
     Indication: COVID-19
     Dosage: 200 MILLIGRAM, BID
     Route: 065
     Dates: start: 202003
  2. CONVALESCENT PLASMA COVID?19 [Suspect]
     Active Substance: COVID-19 CONVALESCENT PLASMA
     Indication: COVID-19
     Dosage: 500 MILLILITER, QD (RECEIVED FROM COMPATIBLE DONORS DURING THE THREE PLASMAPHERESIS SESSIONS)
     Route: 065
     Dates: start: 2020
  3. KALETRA [Suspect]
     Active Substance: LOPINAVIR\RITONAVIR
     Indication: COVID-19
     Dosage: 2 DOSAGE FORM, BID
     Route: 065
     Dates: start: 202003
  4. TARGOCID [Suspect]
     Active Substance: TEICOPLANIN
     Indication: COVID-19
     Dosage: 0.4 GRAM, QD
     Route: 042
     Dates: start: 202003
  5. IMIPENEM [Suspect]
     Active Substance: IMIPENEM
     Indication: COVID-19
     Dosage: 0.5 GRAM, BID
     Route: 042
     Dates: start: 202003

REACTIONS (1)
  - Off label use [Unknown]

NARRATIVE: CASE EVENT DATE: 2020
